FAERS Safety Report 5117217-3 (Version None)
Quarter: 2006Q3

REPORT INFORMATION
  Report Type: 
  Country: None (occurrence: None)
  Receive Date: 20060926
  Receipt Date: 20060914
  Transmission Date: 20061208
  Serious: Yes (Other)
  Sender: FDA-Public Use
  Company Number: 163-21880-06030717

PATIENT
  Age: 79 Year
  Sex: Female
  Weight: 71.6683 kg

DRUGS (16)
  1. REVLIMID [Suspect]
     Indication: MYELODYSPLASTIC SYNDROME
     Dosage: 10 MG, 1 IN 1 D, ORAL
     Route: 048
     Dates: start: 20060228
  2. REVLIMID [Suspect]
  3. ACCUPRIL [Concomitant]
  4. NORVASC [Concomitant]
  5. LASIX [Concomitant]
  6. PAXIL [Concomitant]
  7. NEXIUM [Concomitant]
  8. K-DUR 10 [Concomitant]
  9. LIPITOR [Concomitant]
  10. ALLEGRA [Concomitant]
  11. CELEBREX [Concomitant]
  12. DARVOCET [Concomitant]
  13. LIBRAX [Concomitant]
  14. CALCIUM GLUCONATE [Concomitant]
  15. ASCORBIC ACID [Concomitant]
  16. SALBUTOMOL [Concomitant]

REACTIONS (14)
  - ABASIA [None]
  - ABDOMINAL PAIN UPPER [None]
  - COUGH [None]
  - DRY SKIN [None]
  - ERUCTATION [None]
  - ERYTHEMA [None]
  - FLUID RETENTION [None]
  - HAEMORRHAGE [None]
  - JOINT SWELLING [None]
  - MUSCLE RUPTURE [None]
  - NAUSEA [None]
  - OEDEMA PERIPHERAL [None]
  - PRURITUS [None]
  - VOMITING [None]
